FAERS Safety Report 14570591 (Version 3)
Quarter: 2019Q4

REPORT INFORMATION
  Report Type: Spontaneous
  Country: US (occurrence: US)
  Receive Date: 20180226
  Receipt Date: 20191209
  Transmission Date: 20200122
  Serious: Yes (Hospitalization, Other)
  Sender: FDA-Public Use
  Company Number: US-ASTRAZENECA-2018SE23217

PATIENT
  Age: 13986 Day
  Sex: Female
  Weight: 113.6 kg

DRUGS (52)
  1. SEROQUEL [Concomitant]
     Active Substance: QUETIAPINE FUMARATE
     Indication: BIPOLAR DISORDER
     Route: 065
     Dates: start: 2008, end: 2012
  2. COPAXONE [Concomitant]
     Active Substance: GLATIRAMER ACETATE
     Indication: MULTIPLE SCLEROSIS
     Route: 065
     Dates: start: 2014, end: 2015
  3. OXYCODONE [Concomitant]
     Active Substance: OXYCODONE
     Indication: MULTIPLE SCLEROSIS
     Route: 065
     Dates: start: 2015, end: 201704
  4. AXID AR (OTC) [Concomitant]
  5. AMOXICILLIN. [Concomitant]
     Active Substance: AMOXICILLIN
  6. PERCOCET [Concomitant]
     Active Substance: ACETAMINOPHEN\OXYCODONE HYDROCHLORIDE
  7. DUONEB NEBTX [Concomitant]
  8. SODIUM CHLORIDE. [Concomitant]
     Active Substance: SODIUM CHLORIDE
  9. DIPHENHYDRAMINE HCL [Concomitant]
     Active Substance: DIPHENHYDRAMINE HYDROCHLORIDE
  10. SOLU-MEDROL [Concomitant]
     Active Substance: METHYLPREDNISOLONE SODIUM SUCCINATE
     Indication: MULTIPLE SCLEROSIS
  11. TOPIRAMATE. [Concomitant]
     Active Substance: TOPIRAMATE
  12. KLONOPIN [Concomitant]
     Active Substance: CLONAZEPAM
  13. DULOXETINE. [Concomitant]
     Active Substance: DULOXETINE
     Indication: DEPRESSION
     Route: 065
     Dates: start: 2013
  14. LEVOTHYROXINE. [Concomitant]
     Active Substance: LEVOTHYROXINE
  15. PREDNISONE. [Concomitant]
     Active Substance: PREDNISONE
  16. PYRIDIUM [Concomitant]
     Active Substance: PHENAZOPYRIDINE
     Indication: URINARY TRACT PAIN
  17. NEXIUM [Suspect]
     Active Substance: ESOMEPRAZOLE MAGNESIUM
     Indication: GASTROOESOPHAGEAL REFLUX DISEASE
     Route: 048
     Dates: start: 2018
  18. CIMETIDINE [Concomitant]
     Active Substance: CIMETIDINE
     Route: 065
  19. ROBITUSSIN A-C [Concomitant]
     Indication: COUGH
  20. DIPHENHYDRAMINE HCL [Concomitant]
     Active Substance: DIPHENHYDRAMINE HYDROCHLORIDE
  21. ATIVAN [Concomitant]
     Active Substance: LORAZEPAM
  22. AVENTYL [Concomitant]
     Active Substance: NORTRIPTYLINE HYDROCHLORIDE
  23. PYRIDIUM [Concomitant]
     Active Substance: PHENAZOPYRIDINE
     Indication: BURNING SENSATION
  24. CYMBALTA [Concomitant]
     Active Substance: DULOXETINE HYDROCHLORIDE
     Indication: DEPRESSION
  25. PROZAC [Concomitant]
     Active Substance: FLUOXETINE HYDROCHLORIDE
     Indication: DEPRESSION
     Route: 065
     Dates: start: 2008, end: 2012
  26. ZITHROMAX [Concomitant]
     Active Substance: AZITHROMYCIN DIHYDRATE
  27. MOTRIN [Concomitant]
     Active Substance: IBUPROFEN
     Indication: PYREXIA
  28. NORCO [Concomitant]
     Active Substance: ACETAMINOPHEN\HYDROCODONE BITARTRATE
     Indication: PAIN
  29. FIORICET [Concomitant]
     Active Substance: ACETAMINOPHEN\BUTALBITAL\CAFFEINE
  30. NEXIUM [Suspect]
     Active Substance: ESOMEPRAZOLE MAGNESIUM
     Indication: GASTROOESOPHAGEAL REFLUX DISEASE
     Route: 048
     Dates: start: 20151007, end: 201608
  31. TAMSULOSIN [Concomitant]
     Active Substance: TAMSULOSIN
     Indication: URINARY RETENTION
     Route: 065
     Dates: start: 201512, end: 201612
  32. LYRICA [Concomitant]
     Active Substance: PREGABALIN
     Route: 065
  33. GUAIFENESIN. [Concomitant]
     Active Substance: GUAIFENESIN
  34. TYLENOL [Concomitant]
     Active Substance: ACETAMINOPHEN
     Indication: PYREXIA
  35. DEXAMETHASONE SODIUM PHOSPHATE. [Concomitant]
     Active Substance: DEXAMETHASONE SODIUM PHOSPHATE
  36. DEPAKOTE [Concomitant]
     Active Substance: DIVALPROEX SODIUM
     Indication: BIPOLAR DISORDER
     Route: 065
     Dates: start: 2008, end: 2012
  37. RANITIDINE. [Concomitant]
     Active Substance: RANITIDINE
  38. VENTOLIN HFA [Concomitant]
     Active Substance: ALBUTEROL SULFATE
  39. PROCHLORPERAZINE EDISYLATE. [Concomitant]
     Active Substance: PROCHLORPERAZINE EDISYLATE
  40. DECADRON [Concomitant]
     Active Substance: DEXAMETHASONE
  41. NEURONTIN [Concomitant]
     Active Substance: GABAPENTIN
  42. VITAMIN D3 [Concomitant]
     Active Substance: CHOLECALCIFEROL
  43. RITALIN [Concomitant]
     Active Substance: METHYLPHENIDATE HYDROCHLORIDE
     Indication: ATTENTION DEFICIT/HYPERACTIVITY DISORDER
     Route: 065
     Dates: start: 2008, end: 2012
  44. ALBUTEROL HFA [Concomitant]
     Active Substance: ALBUTEROL SULFATE
     Indication: DYSPNOEA
  45. FLAGYL [Concomitant]
     Active Substance: METRONIDAZOLE\METRONIDAZOLE HYDROCHLORIDE
  46. NEXIUM [Suspect]
     Active Substance: ESOMEPRAZOLE MAGNESIUM
     Indication: GASTROOESOPHAGEAL REFLUX DISEASE
     Route: 048
  47. BACLOFEN. [Concomitant]
     Active Substance: BACLOFEN
     Indication: MUSCLE SPASMS
  48. ALBUTEROL HFA [Concomitant]
     Active Substance: ALBUTEROL SULFATE
     Indication: ASTHMA
  49. COMPAZINE [Concomitant]
     Active Substance: PROCHLORPERAZINE MALEATE
  50. FERROUS FUMARATE [Concomitant]
     Active Substance: FERROUS FUMARATE
  51. ZIPSOR [Concomitant]
     Active Substance: DICLOFENAC POTASSIUM
  52. SOMA [Concomitant]
     Active Substance: CARISOPRODOL

REACTIONS (3)
  - Acute kidney injury [Recovered/Resolved]
  - Relapsing multiple sclerosis [Unknown]
  - Renal failure [Unknown]

NARRATIVE: CASE EVENT DATE: 20160229
